FAERS Safety Report 9882522 (Version 2)
Quarter: 2014Q2

REPORT INFORMATION
  Report Type: Report from Study
  Country: BE (occurrence: BE)
  Receive Date: 20140207
  Receipt Date: 20140411
  Transmission Date: 20141212
  Serious: Yes (Hospitalization)
  Sender: FDA-Public Use
  Company Number: BE-ASTRAZENECA-2014SE08223

PATIENT
  Age: 26488 Day
  Sex: Female

DRUGS (22)
  1. AZD6140 [Suspect]
     Indication: CORONARY ARTERY DISEASE
     Route: 048
     Dates: start: 20130416, end: 20130601
  2. AZD6140 [Suspect]
     Indication: CORONARY ARTERY DISEASE
     Route: 048
     Dates: start: 20130727, end: 20131214
  3. AZD6140 [Suspect]
     Indication: CORONARY ARTERY DISEASE
     Route: 048
     Dates: start: 20131216, end: 20140128
  4. ASA [Concomitant]
     Route: 048
     Dates: end: 20130819
  5. ASA [Concomitant]
     Route: 048
     Dates: start: 20130820
  6. BURINEX [Concomitant]
     Indication: HYPERTENSION
     Route: 048
     Dates: end: 20140218
  7. ATACAND [Concomitant]
     Indication: HYPERTENSION
     Route: 048
     Dates: end: 20140218
  8. BISOPROLOL [Concomitant]
     Indication: CORONARY ARTERY DISEASE
     Route: 048
  9. LIPITOR [Concomitant]
     Indication: HYPERLIPIDAEMIA
     Route: 048
  10. MAGNESPASMYL [Concomitant]
     Indication: MINERAL SUPPLEMENTATION
     Route: 048
     Dates: end: 20140218
  11. MOXONIDINE [Concomitant]
     Indication: HYPERTENSION
     Route: 048
  12. AMLOR [Concomitant]
     Indication: HYPERTENSION
     Route: 048
  13. PANTOMED [Concomitant]
     Indication: OESOPHAGITIS
     Route: 048
  14. PANTOMED [Concomitant]
     Indication: HIATUS HERNIA
     Route: 048
  15. DAFLON [Concomitant]
     Indication: LYMPHOEDEMA
     Route: 048
     Dates: start: 20130820, end: 20140218
  16. D-CURE [Concomitant]
     Indication: PROPHYLAXIS
     Route: 048
     Dates: start: 20130930
  17. DOVOBET [Concomitant]
     Indication: PSORIASIS
     Route: 061
     Dates: start: 20130926
  18. VALTRAN [Concomitant]
     Indication: PAIN
     Route: 048
  19. DAFALGAN [Concomitant]
     Indication: PAIN
     Route: 048
  20. KALIUM RETARD [Concomitant]
     Indication: PROPHYLAXIS
     Route: 048
     Dates: start: 20130820, end: 20140218
  21. BENERVA [Concomitant]
     Indication: MUSCLE SPASMS
     Route: 048
     Dates: end: 20140218
  22. KEPPRA [Concomitant]
     Indication: GENERALISED TONIC-CLONIC SEIZURE
     Route: 048
     Dates: start: 20131214

REACTIONS (1)
  - Normochromic normocytic anaemia [Recovered/Resolved]
